FAERS Safety Report 18051751 (Version 1)
Quarter: 2020Q3

REPORT INFORMATION
  Report Type: Spontaneous
  Country: KR (occurrence: KR)
  Receive Date: 20200722
  Receipt Date: 20200722
  Transmission Date: 20201103
  Serious: Yes (Other)
  Sender: FDA-Public Use
  Company Number: KR-SUN PHARMACEUTICAL INDUSTRIES LTD-2020RR-254456

PATIENT
  Age: 60 Year
  Sex: Female
  Weight: 45.6 kg

DRUGS (2)
  1. HYDROXYCHLOROQUINE [Suspect]
     Active Substance: HYDROXYCHLOROQUINE
     Indication: CORONAVIRUS INFECTION
     Dosage: 400 MILLIGRAM, DAILY
     Route: 065
     Dates: start: 20200406, end: 20200408
  2. AZITHROMYCIN ANHYDROUS. [Suspect]
     Active Substance: AZITHROMYCIN ANHYDROUS
     Indication: CORONAVIRUS INFECTION
     Dosage: 500 MILLIGRAM, DAILY
     Route: 065
     Dates: start: 20200406, end: 20200408

REACTIONS (2)
  - Therapeutic response unexpected [Unknown]
  - Off label use [Unknown]
